FAERS Safety Report 18573824 (Version 1)
Quarter: 2020Q4

REPORT INFORMATION
  Report Type: Spontaneous
  Country: US (occurrence: US)
  Receive Date: 20201201
  Receipt Date: 20201201
  Transmission Date: 20210114
  Serious: Yes (Other)
  Sender: FDA-Public Use
  Company Number: None

PATIENT

DRUGS (2)
  1. NO DRUG NAME [Concomitant]
  2. COPPERTONE SPORT LIP BALM SPF 50 [Suspect]
     Active Substance: AVOBENZONE\HOMOSALATE\OCTISALATE\OXYBENZONE\PETROLATUM
     Dates: start: 20201119, end: 20201119

REACTIONS (2)
  - Cheilitis [None]
  - Chapped lips [None]

NARRATIVE: CASE EVENT DATE: 20201119
